FAERS Safety Report 25392827 (Version 1)
Quarter: 2025Q2

REPORT INFORMATION
  Report Type: Report from Study
  Country: US (occurrence: US)
  Receive Date: 20250603
  Receipt Date: 20250603
  Transmission Date: 20250717
  Serious: Yes (Hospitalization)
  Sender: MALLINCKRODT
  Company Number: US-MALLINCKRODT-MNK202503223

PATIENT
  Sex: Female

DRUGS (2)
  1. CORTICOTROPIN [Suspect]
     Active Substance: CORTICOTROPIN
     Indication: Sarcoidosis
     Route: 058
  2. LANTUS [Concomitant]
     Active Substance: INSULIN GLARGINE

REACTIONS (7)
  - Pancreatitis [Unknown]
  - Pain in extremity [Recovering/Resolving]
  - White blood cell count increased [Unknown]
  - Blood potassium increased [Unknown]
  - Dehydration [Unknown]
  - Injection site mass [Not Recovered/Not Resolved]
  - Blood glucose increased [Unknown]
